FAERS Safety Report 7423089-4 (Version None)
Quarter: 2011Q2

REPORT INFORMATION
  Report Type: 
  Country: None (occurrence: None)
  Receive Date: 20110419
  Receipt Date: 20110411
  Transmission Date: 20111010
  Serious: Yes (Other)
  Sender: FDA-Public Use
  Company Number: CA-TEVA-276870USA

PATIENT
  Age: 60 Year
  Sex: Female
  Weight: 54.934 kg

DRUGS (5)
  1. GLIBENCLAMIDE [Concomitant]
  2. LEVOTHYROXINE SODIUM [Concomitant]
     Route: 048
  3. AMLODIPINE [Concomitant]
     Route: 048
  4. FENOFIBRATE [Suspect]
     Dosage: 160 MILLIGRAM;
     Route: 048
  5. METFORMIN [Concomitant]

REACTIONS (8)
  - ABDOMINAL PAIN [None]
  - FATIGUE [None]
  - GALLBLADDER PAIN [None]
  - HYPERGLYCAEMIA [None]
  - HOT FLUSH [None]
  - PAIN IN EXTREMITY [None]
  - ABDOMINAL DISTENSION [None]
  - HEADACHE [None]
